FAERS Safety Report 11842663 (Version 6)
Quarter: 2016Q1

REPORT INFORMATION
  Report Type: Spontaneous
  Country: JP (occurrence: JP)
  Receive Date: 20151216
  Receipt Date: 20160219
  Transmission Date: 20160526
  Serious: Yes (Death, Life-Threatening)
  Sender: FDA-Public Use
  Company Number: JP-PFIZER INC-2015445373

PATIENT
  Age: 26 Year
  Sex: Female
  Weight: 46 kg

DRUGS (13)
  1. NOBELBAR [Concomitant]
     Active Substance: PHENOBARBITAL SODIUM
     Dosage: 750 MG, 1X/DAY
     Dates: start: 20151209, end: 20151209
  2. PREDNISOLONE SODIUM SUCCINATE [Concomitant]
     Active Substance: PREDNISOLONE SODIUM SUCCINATE
     Indication: RENAL IMPAIRMENT
     Dosage: 60 MG, 1X/DAY
     Dates: start: 20151210, end: 20151212
  3. PREDNISOLONE SODIUM SUCCINATE [Concomitant]
     Active Substance: PREDNISOLONE SODIUM SUCCINATE
     Dosage: 20 MG, 1X/DAY
     Dates: start: 20151215, end: 20151216
  4. FOSPHENYTOIN SODIUM. [Suspect]
     Active Substance: FOSPHENYTOIN SODIUM
     Indication: STATUS EPILEPTICUS
     Dosage: 375 MG ? 1
     Route: 042
     Dates: start: 20151205, end: 20151207
  5. HEPARIN [Concomitant]
     Active Substance: HEPARIN SODIUM
     Indication: DISSEMINATED INTRAVASCULAR COAGULATION
     Dosage: 10000 UNITS ONCE DAILY
     Dates: start: 20151210, end: 20151214
  6. PREDNISOLONE SODIUM SUCCINATE [Concomitant]
     Active Substance: PREDNISOLONE SODIUM SUCCINATE
     Dosage: 10 MG, 1X/DAY
     Dates: start: 20151217, end: 20151218
  7. CRAVIT [Concomitant]
     Active Substance: LEVOFLOXACIN
     Indication: DISSEMINATED INTRAVASCULAR COAGULATION
     Dosage: 500 MG, 1X/DAY
     Dates: start: 20151209, end: 20151215
  8. NOBELBAR [Concomitant]
     Active Substance: PHENOBARBITAL SODIUM
     Dosage: 375 MG, 1X/DAY
     Dates: start: 20151210
  9. FOSPHENYTOIN SODIUM. [Suspect]
     Active Substance: FOSPHENYTOIN SODIUM
     Indication: EPILEPSY
     Dosage: 750 MG X1
     Route: 042
     Dates: start: 20151204, end: 20151204
  10. ATROPIN /00002801/ [Concomitant]
     Indication: DISSEMINATED INTRAVASCULAR COAGULATION
     Dosage: 1 G, 1X/DAY
     Dates: start: 20151210, end: 20151212
  11. FOSPHENYTOIN SODIUM. [Suspect]
     Active Substance: FOSPHENYTOIN SODIUM
     Dosage: 562.5 MG X 1
     Route: 042
     Dates: start: 20151208, end: 20151209
  12. VEEN-F [Concomitant]
     Dosage: 500 ML, 2X/DAY
     Dates: start: 20151204, end: 20151209
  13. PREDNISOLONE SODIUM SUCCINATE [Concomitant]
     Active Substance: PREDNISOLONE SODIUM SUCCINATE
     Indication: HEPATIC FUNCTION ABNORMAL
     Dosage: 40 MG, 1X/DAY
     Dates: start: 20151213, end: 20151214

REACTIONS (6)
  - Hepatic function abnormal [Not Recovered/Not Resolved]
  - Hepatic failure [Not Recovered/Not Resolved]
  - Respiratory arrest [Fatal]
  - Renal impairment [Recovered/Resolved]
  - Hypoxic-ischaemic encephalopathy [Fatal]
  - Disseminated intravascular coagulation [Recovered/Resolved]

NARRATIVE: CASE EVENT DATE: 2015
